FAERS Safety Report 19147168 (Version 1)
Quarter: 2021Q2

REPORT INFORMATION
  Report Type: Spontaneous
  Country: US (occurrence: US)
  Receive Date: 20210416
  Receipt Date: 20210416
  Transmission Date: 20210717
  Serious: No
  Sender: FDA-Public Use
  Company Number: US-FRESENIUS KABI-FK202103778

PATIENT
  Age: 28 Year
  Sex: Female
  Weight: 115.2 kg

DRUGS (11)
  1. OXYTOCIN. [Concomitant]
     Active Substance: OXYTOCIN
     Dosage: INPATIENT MEDICATIONS?OXYTOCIN 30 UNITS IN 500ML LACTATED RINGERS BOLUS?DIRECTIONS: START POST?DELIV
     Route: 042
     Dates: start: 20210407
  2. ACETYLSALICYLIC ACID [Concomitant]
     Active Substance: ASPIRIN
     Indication: PRODUCT USED FOR UNKNOWN INDICATION
     Dosage: OUTPATIENT MEDICATION?1 TAB PO DAILY
     Route: 048
  3. IBUPROFEN. [Concomitant]
     Active Substance: IBUPROFEN
     Indication: PAIN
     Dosage: INPATIENT MEDICATIONS?TAKE Q6H PRN
     Route: 048
     Dates: start: 20210408
  4. ASCORBIC ACID/PYRIDOXINE HYDROCHLORIDE/TOCOPHERYL ACETATE/FOLIC ACID/COLECALCIFEROL/CYANOCOBALAMIN/R [Concomitant]
     Indication: PRODUCT USED FOR UNKNOWN INDICATION
     Dosage: OUTPATIENT MEDICATION?1 TAB PO DAILY
     Route: 048
  5. CALCIUM CARBONATE. [Concomitant]
     Active Substance: CALCIUM CARBONATE
     Indication: PRODUCT USED FOR UNKNOWN INDICATION
     Dosage: OUTPATIENT MEDICATION?2 TABS PO PRN
     Route: 048
  6. AMPICILLIN [Concomitant]
     Active Substance: AMPICILLIN
     Indication: BETA HAEMOLYTIC STREPTOCOCCAL INFECTION
     Dosage: INPATIENT MEDICATIONS?AMPICILLIN 2G IN NACL 0.9PERCENT IV MINI?BAG 100ML?INFUSE OVER 30MIN
     Route: 042
     Dates: start: 20210407
  7. SODIUM LACTATE/GLUCOSE MONOHYDRATE/POTASSIUM CHLORIDE/SODIUM CHLORIDE/CALCIUM CHLORIDE [Concomitant]
     Indication: PRODUCT USED FOR UNKNOWN INDICATION
     Dosage: INPATIENT MEDICATIONS
     Route: 042
     Dates: start: 20210407
  8. OXYTOCIN. [Concomitant]
     Active Substance: OXYTOCIN
     Indication: POSTPARTUM STATE
     Dosage: INPATIENT MEDICATIONS?OXYTOCIN 30 UNITS IN 500ML LACTATED RINGERS IV DRIP?2MU/MIN IV Q30MIN
     Route: 041
     Dates: start: 20210407
  9. NAROPIN [Suspect]
     Active Substance: ROPIVACAINE HYDROCHLORIDE
     Indication: PREGNANCY
     Dosage: EPIDURAL DRIP PF PREMIX ?ONE TIME DOSE, EPIDURAL SPACE?ROPIVACAINE 0.2 PERCENT IN NACL 0.9 PERCENT 1
     Route: 008
     Dates: start: 20210407, end: 20210407
  10. AMPICILLIN [Concomitant]
     Active Substance: AMPICILLIN
     Dosage: INPATIENT MEDICATIONS?AMPICILLIN 1G IN NACL 0.9% IV MINI?BAG 50ML?INFUSE OVER 30MIN IVPB Q4H
     Route: 042
     Dates: start: 20210407, end: 20210407
  11. CINCHOCAINE [Concomitant]
     Active Substance: DIBUCAINE
     Indication: PRODUCT USED FOR UNKNOWN INDICATION
     Dosage: INPATIENT MEDICATIONS?APPLY TOPICALLY QID
     Route: 061
     Dates: start: 20210408

REACTIONS (1)
  - Drug ineffective [Unknown]
